FAERS Safety Report 7791054-3 (Version None)
Quarter: 2011Q4

REPORT INFORMATION
  Report Type: 
  Country: None (occurrence: None)
  Receive Date: 20111003
  Receipt Date: 20110923
  Transmission Date: 20120403
  Serious: Yes (Hospitalization, Other)
  Sender: FDA-Public Use
  Company Number: US-BIOGENIDEC-2011BI033345

PATIENT
  Age: 55 Year
  Sex: Female

DRUGS (23)
  1. BONIVA [Concomitant]
     Route: 048
  2. REGLAN [Concomitant]
     Route: 048
  3. CLARITIN [Concomitant]
     Route: 048
  4. VITAMIN E [Concomitant]
  5. CARVEDILOL [Concomitant]
  6. GLUCOSAMINE CHONDROITIN [Concomitant]
  7. MULTI-VITAMIN [Concomitant]
  8. AVONEX [Suspect]
     Indication: MULTIPLE SCLEROSIS
     Route: 030
     Dates: start: 19960801
  9. POTASSIUM CHLORIDE [Concomitant]
     Route: 048
  10. OMEPRAZOLE [Concomitant]
     Route: 048
  11. ACYCLOVIR [Concomitant]
     Indication: HERPES ZOSTER
     Route: 048
  12. ASCORBIC ACID [Concomitant]
     Route: 048
  13. AGGRENOX [Concomitant]
     Route: 030
  14. PROSED DS [Concomitant]
     Route: 048
  15. ASTELIN [Concomitant]
     Route: 045
  16. FLONASE [Concomitant]
     Route: 045
  17. PAXIL [Concomitant]
     Route: 048
  18. CLONIDINE [Concomitant]
     Route: 048
  19. ASPIRIN [Concomitant]
     Route: 048
  20. XANAX [Concomitant]
     Indication: ANXIETY
     Route: 048
  21. ASTELIN [Concomitant]
     Route: 045
  22. CLARITIN [Concomitant]
     Route: 048
  23. MIRALAX [Concomitant]
     Route: 048

REACTIONS (10)
  - HYPERLIPIDAEMIA [None]
  - SUPRAVENTRICULAR TACHYCARDIA [None]
  - BONE NEOPLASM [None]
  - HYPOKALAEMIA [None]
  - DYSURIA [None]
  - HYPERTENSION [None]
  - LYMPHOEDEMA [None]
  - CELLULITIS [None]
  - SYNCOPE [None]
  - CORONARY ARTERY DISEASE [None]
